FAERS Safety Report 24432114 (Version 1)
Quarter: 2024Q4

REPORT INFORMATION
  Report Type: Spontaneous
  Country: US (occurrence: US)
  Receive Date: 20241014
  Receipt Date: 20241014
  Transmission Date: 20250115
  Serious: Yes (Hospitalization)
  Sender: CIPLA
  Company Number: US-CIPLA LTD.-2024US11236

PATIENT

DRUGS (6)
  1. ACYCLOVIR [Suspect]
     Active Substance: ACYCLOVIR
     Indication: Acquired immunodeficiency syndrome
     Dosage: 400 MILLIGRAM, 5 TIMES PER DAY FOR 1 MONTH
     Route: 065
  2. ACYCLOVIR [Suspect]
     Active Substance: ACYCLOVIR
     Indication: HIV infection
  3. VALACYCLOVIR [Concomitant]
     Active Substance: VALACYCLOVIR HYDROCHLORIDE
     Indication: Acquired immunodeficiency syndrome
     Dosage: 1 GRAM, TID (3 TIMES DAILY)
     Route: 065
  4. VALACYCLOVIR [Concomitant]
     Active Substance: VALACYCLOVIR HYDROCHLORIDE
     Indication: HIV infection
     Dosage: 1 GRAM, TID (3 TIMES DAILY)
     Route: 065
  5. METHYLPREDNISOLONE [Concomitant]
     Active Substance: METHYLPREDNISOLONE
     Indication: Acquired immunodeficiency syndrome
     Dosage: FOR 1 MONTH
     Route: 065
  6. METHYLPREDNISOLONE [Concomitant]
     Active Substance: METHYLPREDNISOLONE
     Indication: HIV infection

REACTIONS (2)
  - Herpes simplex [Recovered/Resolved]
  - Drug resistance [Unknown]
